FAERS Safety Report 8595869-3 (Version None)
Quarter: 2012Q3

REPORT INFORMATION
  Report Type: 
  Country: None (occurrence: None)
  Receive Date: 20120815
  Receipt Date: 20120808
  Transmission Date: 20120928
  Serious: Yes (Hospitalization, Other)
  Sender: FDA-Public Use
  Company Number: CL-ROCHE-1099726

PATIENT
  Sex: Male
  Weight: 74 kg

DRUGS (3)
  1. ENALAPRIL MALEATE [Concomitant]
     Indication: HYPERTENSION
  2. ATENOLOL [Concomitant]
     Indication: HYPERTENSION
  3. XELODA [Suspect]
     Indication: COLON CANCER
     Route: 048
     Dates: start: 20120625, end: 20120807

REACTIONS (1)
  - POST PROCEDURAL HAEMORRHAGE [None]
